FAERS Safety Report 22237937 (Version 2)
Quarter: 2023Q2

REPORT INFORMATION
  Report Type: Spontaneous
  Country: US (occurrence: US)
  Receive Date: 20230421
  Receipt Date: 20230613
  Transmission Date: 20230721
  Serious: Yes (Other)
  Sender: FDA-Public Use
  Company Number: US-ABBVIE-4715182

PATIENT
  Sex: Female
  Weight: 68 kg

DRUGS (12)
  1. SYNTHROID [Suspect]
     Active Substance: LEVOTHYROXINE SODIUM
     Indication: Product used for unknown indication
     Dosage: 75 MCG, 1/2 TAB ON WEDNESDAY, 1 TAB ALL OTHER DAYS
     Route: 048
  2. ASPIRIN [Concomitant]
     Active Substance: ASPIRIN
     Indication: Product used for unknown indication
  3. CALCIUM 600 MG WITH VITAMIN D [Concomitant]
     Indication: Product used for unknown indication
     Dosage: 1 SOFT GEL TWO TIMES DAILY?VITAMIN D 400IU
  4. VITAMIN D3 [Concomitant]
     Active Substance: CHOLECALCIFEROL
     Indication: Product used for unknown indication
     Dosage: 1 SOFTGEL TWO TIMES A DAY
  5. LISINOPRIL [Concomitant]
     Active Substance: LISINOPRIL
     Indication: Product used for unknown indication
  6. ROSUVASTATIN [Concomitant]
     Active Substance: ROSUVASTATIN
     Indication: Product used for unknown indication
  7. METOPROLOL SUCCINATE [Concomitant]
     Active Substance: METOPROLOL SUCCINATE
     Indication: Product used for unknown indication
     Dosage: DAILY
     Dates: start: 20230428
  8. METOPROLOL SUCCINATE [Concomitant]
     Active Substance: METOPROLOL SUCCINATE
     Indication: Product used for unknown indication
     Dosage: D/CED?INCREASED TO 1 1/2 TABS ?DAILY
     Dates: start: 20230427
  9. METOPROLOL SUCCINATE [Concomitant]
     Active Substance: METOPROLOL SUCCINATE
     Indication: Product used for unknown indication
     Dosage: EXTENDED RELEASE?DAILY
     Dates: start: 20230324
  10. LEQVIO [Concomitant]
     Active Substance: INCLISIRAN SODIUM
     Indication: Product used for unknown indication
     Dosage: INJECTION?AS PRESCRIBED
  11. ISOSORBIDE MONONITRATE [Concomitant]
     Active Substance: ISOSORBIDE MONONITRATE
     Indication: Product used for unknown indication
  12. ISOSORBIDE MONONITRATE [Concomitant]
     Active Substance: ISOSORBIDE MONONITRATE
     Indication: Product used for unknown indication
     Dosage: DAILY
     Dates: start: 20230427

REACTIONS (7)
  - Coronary artery occlusion [Not Recovered/Not Resolved]
  - Nail growth abnormal [Unknown]
  - Ventricular extrasystoles [Unknown]
  - Alopecia [Unknown]
  - Protein total decreased [Unknown]
  - Onychoclasis [Unknown]
  - Thyroid disorder [Unknown]
